FAERS Safety Report 5146572-3 (Version None)
Quarter: 2006Q4

REPORT INFORMATION
  Report Type: 
  Country: None (occurrence: None)
  Receive Date: 20060911
  Receipt Date: 20060613
  Transmission Date: 20070319
  Serious: No
  Sender: FDA-Public Use
  Company Number: IND-AE-06-SAN-024

PATIENT
  Age: 71 Year
  Sex: Male

DRUGS (3)
  1. SANCTURA [Suspect]
     Indication: POLLAKIURIA
     Dosage: 20 MG -QD-ORAL
     Route: 048
     Dates: start: 20060612, end: 20060612
  2. FLOMAX [Concomitant]
  3. ACCUPRIL [Concomitant]

REACTIONS (3)
  - ABDOMINAL PAIN UPPER [None]
  - BLOOD PRESSURE INCREASED [None]
  - URINARY RETENTION [None]
